FAERS Safety Report 7892628-1 (Version None)
Quarter: 2011Q4

REPORT INFORMATION
  Report Type: 
  Country: None (occurrence: None)
  Receive Date: 20111019
  Receipt Date: 20111004
  Transmission Date: 20120403
  Serious: Yes (Other)
  Sender: FDA-Public Use
  Company Number: US-IGSA-IG902

PATIENT
  Age: 66 Year
  Sex: Female

DRUGS (2)
  1. FLEBOGAMMA [Suspect]
  2. FLEBOGAMMA 5% DIF [Suspect]
     Indication: CHRONIC INFLAMMATORY DEMYELINATING POLYRADICULONEUROPATHY
     Dosage: UNK DOSE EVERY 304 MONTH
     Dates: start: 20080101, end: 20110701

REACTIONS (8)
  - FAECAL INCONTINENCE [None]
  - SPINAL CORD INFARCTION [None]
  - URINARY INCONTINENCE [None]
  - HYPOAESTHESIA [None]
  - MUSCULAR WEAKNESS [None]
  - PARAESTHESIA [None]
  - DYSKINESIA [None]
  - CEREBROVASCULAR ACCIDENT [None]
